FAERS Safety Report 19426525 (Version 1)
Quarter: 2021Q2

REPORT INFORMATION
  Report Type: Spontaneous
  Country: JP (occurrence: JP)
  Receive Date: 20210617
  Receipt Date: 20210617
  Transmission Date: 20210717
  Serious: Yes (Other)
  Sender: FDA-Public Use
  Company Number: NVSJ2020JP014363

PATIENT
  Age: 67 Year
  Sex: Female
  Weight: 54 kg

DRUGS (1)
  1. BEOVU [Suspect]
     Active Substance: BROLUCIZUMAB-DBLL
     Indication: AGE-RELATED MACULAR DEGENERATION
     Dosage: 6 MG
     Route: 031
     Dates: start: 20201204, end: 20201204

REACTIONS (10)
  - Retinal perivascular sheathing [Recovering/Resolving]
  - Anterior chamber inflammation [Recovering/Resolving]
  - Visual acuity reduced transiently [Not Recovered/Not Resolved]
  - Ocular hypertension [Recovering/Resolving]
  - Condition aggravated [Unknown]
  - Conjunctival hyperaemia [Recovering/Resolving]
  - Age-related macular degeneration [Unknown]
  - Vitreous floaters [Recovering/Resolving]
  - Retinal vasculitis [Recovering/Resolving]
  - Anterior chamber cell [Recovering/Resolving]

NARRATIVE: CASE EVENT DATE: 20201211
